FAERS Safety Report 10100564 (Version 1)
Quarter: 2014Q2

REPORT INFORMATION
  Report Type: Spontaneous
  Country: US (occurrence: US)
  Receive Date: 20140423
  Receipt Date: 20140423
  Transmission Date: 20141212
  Serious: No
  Sender: FDA-Public Use
  Company Number: US-009507513-1404USA001921

PATIENT
  Age: 77 Year
  Sex: Female
  Weight: 60.77 kg

DRUGS (4)
  1. OXYTROL FOR WOMEN [Suspect]
     Indication: NOCTURIA
     Dosage: UNK, UNKNOWN
     Route: 062
     Dates: start: 20140325
  2. SIMVASTATIN [Concomitant]
     Indication: GENERAL SYMPTOM
     Dosage: 40 MG, UNKNOWN
  3. CENTRUM (MINERALS (UNSPECIFIED) (+) VITAMINS (UNSPECIFIED)) [Concomitant]
     Indication: GENERAL SYMPTOM
     Dosage: UNK, UNKNOWN
  4. CALCIUM D3 [Concomitant]
     Indication: GENERAL SYMPTOM
     Dosage: UNK, UNKNOWN

REACTIONS (4)
  - Back pain [Recovered/Resolved]
  - Dry mouth [Recovered/Resolved]
  - Fatigue [Unknown]
  - Dizziness [Recovered/Resolved]
